FAERS Safety Report 10791340 (Version 2)
Quarter: 2015Q1

REPORT INFORMATION
  Report Type: Spontaneous
  Country: US (occurrence: US)
  Receive Date: 20150213
  Receipt Date: 20150319
  Transmission Date: 20150721
  Serious: No
  Sender: FDA-Public Use
  Company Number: US-ASTRAZENECA-2015SE11054

PATIENT
  Sex: Female

DRUGS (4)
  1. METOPROLOL SUCCINATE. [Suspect]
     Active Substance: METOPROLOL SUCCINATE
     Indication: ARRHYTHMIA
     Route: 048
     Dates: start: 201407, end: 201501
  2. METOPROLOL SUCCINATE. [Suspect]
     Active Substance: METOPROLOL SUCCINATE
     Indication: ARRHYTHMIA
     Dosage: 12.5 MG EVERYDAY, PAR PHARMA
     Route: 048
     Dates: start: 201501
  3. METOPROLOL SUCCINATE. [Suspect]
     Active Substance: METOPROLOL SUCCINATE
     Indication: ARRHYTHMIA
     Dosage: 1/2 OF A 25MG TABLET, ONCE A DAY
     Route: 048
     Dates: start: 201501
  4. OMEPRAZOLE. [Suspect]
     Active Substance: OMEPRAZOLE
     Route: 048

REACTIONS (5)
  - Palpitations [Not Recovered/Not Resolved]
  - Intentional product use issue [Recovered/Resolved]
  - Product use issue [Unknown]
  - Drug ineffective [Not Recovered/Not Resolved]
  - Heart rate irregular [Recovered/Resolved]

NARRATIVE: CASE EVENT DATE: 201407
